FAERS Safety Report 4512084-0 (Version None)
Quarter: 2004Q4

REPORT INFORMATION
  Report Type: 
  Country: None (occurrence: None)
  Receive Date: 20041129
  Receipt Date: 20040910
  Transmission Date: 20050328
  Serious: Yes (Other)
  Sender: FDA-Public Use
  Company Number: FR-ROCHE-380167

PATIENT
  Age: 57 Year
  Sex: Male
  Weight: 81 kg

DRUGS (3)
  1. PEGASYS [Suspect]
     Indication: HEPATITIS C
     Route: 058
     Dates: start: 20040528
  2. PEGASYS [Suspect]
     Route: 058
     Dates: end: 20041006
  3. COPEGUS [Concomitant]
     Route: 048
     Dates: start: 20040528, end: 20041006

REACTIONS (5)
  - INFLAMMATION [None]
  - MYALGIA [None]
  - PANCYTOPENIA [None]
  - THROMBOCYTOPENIA [None]
  - TRANSAMINASES INCREASED [None]
